FAERS Safety Report 13483450 (Version 3)
Quarter: 2017Q4

REPORT INFORMATION
  Report Type: Report from Study
  Country: None (occurrence: US)
  Receive Date: 20170426
  Receipt Date: 20171128
  Transmission Date: 20180320
  Serious: Yes (Hospitalization, Other)
  Sender: FDA-Public Use
  Company Number: US-ABBVIE-17K-163-1950146-00

PATIENT
  Age: 75 Year
  Sex: Female
  Weight: 54.93 kg

DRUGS (4)
  1. PREDNISONE. [Concomitant]
     Active Substance: PREDNISONE
     Indication: CROHN^S DISEASE
  2. IMDUR [Suspect]
     Active Substance: ISOSORBIDE MONONITRATE
     Indication: PRODUCT USED FOR UNKNOWN INDICATION
     Route: 065
  3. HUMIRA [Suspect]
     Active Substance: ADALIMUMAB
     Indication: CROHN^S DISEASE
     Route: 058
     Dates: start: 2014, end: 201705
  4. APRISO [Concomitant]
     Active Substance: MESALAMINE
     Indication: CROHN^S DISEASE

REACTIONS (21)
  - Pyrexia [Recovered/Resolved]
  - Ejection fraction decreased [Not Recovered/Not Resolved]
  - Chest pain [Unknown]
  - Vomiting [Recovered/Resolved]
  - Rales [Recovered/Resolved]
  - Mobility decreased [Not Recovered/Not Resolved]
  - Blood pressure decreased [Not Recovered/Not Resolved]
  - Cardiac disorder [Unknown]
  - Cardiac arrest [Recovering/Resolving]
  - Diverticulitis [Recovered/Resolved]
  - Aortic valve disease [Recovering/Resolving]
  - Dyspnoea [Recovered/Resolved]
  - Chest pain [Recovering/Resolving]
  - Wheezing [Recovered/Resolved]
  - Dizziness [Not Recovered/Not Resolved]
  - Asthenia [Not Recovered/Not Resolved]
  - Atrioventricular block [Recovering/Resolving]
  - Urinary tract infection [Recovered/Resolved]
  - Myocardial infarction [Recovering/Resolving]
  - Coronary artery occlusion [Not Recovered/Not Resolved]
  - Cardiac disorder [Recovering/Resolving]

NARRATIVE: CASE EVENT DATE: 201702
